FAERS Safety Report 10192385 (Version 1)
Quarter: 2014Q2

REPORT INFORMATION
  Report Type: Spontaneous
  Country: US (occurrence: US)
  Receive Date: 20140523
  Receipt Date: 20140523
  Transmission Date: 20141212
  Serious: Yes (Hospitalization)
  Sender: FDA-Public Use
  Company Number: US-ACTAVIS-2014-11016

PATIENT
  Age: 70 Year
  Sex: Male

DRUGS (3)
  1. DILTIAZEM (UNKNOWN) [Suspect]
     Indication: ATRIAL FIBRILLATION
     Dosage: 20 MG, SINGLE
     Route: 040
  2. DILTIAZEM (UNKNOWN) [Suspect]
     Dosage: 10 MG/H; INTRAVENOUS INFUSION
     Route: 042
  3. ENOXAPARIN [Concomitant]
     Indication: ATRIAL FIBRILLATION
     Dosage: UNKNOWN
     Route: 065

REACTIONS (5)
  - Ischaemic hepatitis [Recovered/Resolved]
  - Acute hepatic failure [Recovered/Resolved]
  - Renal failure [Recovered/Resolved]
  - Haemorrhagic diathesis [Recovered/Resolved]
  - Hypotension [Recovered/Resolved]
